FAERS Safety Report 7561112-7 (Version None)
Quarter: 2011Q2

REPORT INFORMATION
  Report Type: 
  Country: None (occurrence: None)
  Receive Date: 20110617
  Receipt Date: 20110617
  Transmission Date: 20111010
  Serious: Yes (Life-Threatening, Hospitalization)
  Sender: FDA-Public Use
  Company Number: None

PATIENT
  Age: 84 Year
  Sex: Male

DRUGS (1)
  1. PACLITAXEL [Suspect]
     Indication: NEOPLASM MALIGNANT
     Dosage: 6MG/ML IV DRIP
     Route: 041
     Dates: start: 20110524, end: 20110607

REACTIONS (4)
  - PRODUCT SUBSTITUTION ISSUE [None]
  - CONVULSION [None]
  - CARDIAC ARREST [None]
  - RESPIRATORY ARREST [None]
